FAERS Safety Report 17468535 (Version 1)
Quarter: 2020Q1

REPORT INFORMATION
  Report Type: Spontaneous
  Country: US (occurrence: US)
  Receive Date: 20200217
  Receipt Date: 20200217
  Transmission Date: 20200409
  Serious: No
  Sender: FDA-Public Use
  Company Number: None

PATIENT
  Age: 54 Year
  Sex: Male

DRUGS (1)
  1. TENOFOVIR DF 300MG TAB (X30) [Suspect]
     Active Substance: TENOFOVIR DISOPROXIL FUMARATE
     Dosage: ?          OTHER DOSE:30;?
     Route: 048
     Dates: start: 201901, end: 202002

REACTIONS (4)
  - Nausea [None]
  - Therapy cessation [None]
  - Abdominal distension [None]
  - Vomiting [None]

NARRATIVE: CASE EVENT DATE: 20200217
